FAERS Safety Report 7033475-2 (Version None)
Quarter: 2010Q4

REPORT INFORMATION
  Report Type: 
  Country: None (occurrence: None)
  Receive Date: 20101007
  Receipt Date: 20100922
  Transmission Date: 20110411
  Serious: Yes (Other)
  Sender: FDA-Public Use
  Company Number: PHHY2010NL50230

PATIENT
  Sex: Male

DRUGS (12)
  1. ZOMETA [Suspect]
     Dosage: 4 MG/5 ML
     Route: 042
     Dates: start: 20100409
  2. ZOMETA [Suspect]
     Dosage: 4 MG/5 ML
     Dates: start: 20100506
  3. ZOMETA [Suspect]
     Dosage: 4 MG/5 ML
     Dates: start: 20100603
  4. ZOMETA [Suspect]
     Dosage: 4 MG/5 ML
     Dates: start: 20100701
  5. ZOMETA [Suspect]
     Dosage: 4 MG/5 ML
     Dates: start: 20100729
  6. ZOMETA [Suspect]
     Dosage: 4 MG/5 ML
     Dates: start: 20100825
  7. ZOMETA [Suspect]
     Dosage: 4 MG/5 ML
     Dates: start: 20100922
  8. METOPROLOL TARTRATE [Concomitant]
     Dosage: UNK
  9. BICALUTAMIDE [Concomitant]
     Dosage: UNK
  10. LYRICA [Concomitant]
     Dosage: UNK
  11. PERINDOPRIL [Concomitant]
     Dosage: 4 MG
  12. PERINDOPRIL [Concomitant]
     Dosage: 2 MG

REACTIONS (8)
  - ARTHRALGIA [None]
  - BACK PAIN [None]
  - CONSTIPATION [None]
  - DIZZINESS [None]
  - GAIT DISTURBANCE [None]
  - HAEMOGLOBIN DECREASED [None]
  - METASTASES TO BONE [None]
  - OEDEMA PERIPHERAL [None]
